FAERS Safety Report 8380088-6 (Version None)
Quarter: 2012Q2

REPORT INFORMATION
  Report Type: 
  Country: None (occurrence: None)
  Receive Date: 20120523
  Receipt Date: 20120511
  Transmission Date: 20120825
  Serious: Yes (Other)
  Sender: FDA-Public Use
  Company Number: JP-GLAXOSMITHKLINE-B0798849A

PATIENT
  Age: 75 Year
  Sex: Male

DRUGS (5)
  1. PAXIL [Suspect]
     Indication: PRODUCT USED FOR UNKNOWN INDICATION
     Dosage: 30MG PER DAY
     Route: 048
     Dates: end: 20120411
  2. ZYPREXA [Concomitant]
     Route: 048
  3. UNKNOWN DRUG [Concomitant]
     Route: 065
     Dates: end: 20111031
  4. EVAMYL [Concomitant]
     Route: 048
  5. UNKNOWN DRUG [Concomitant]
     Route: 065

REACTIONS (4)
  - MYOCARDIAL INFARCTION [None]
  - HYPOPNOEA [None]
  - RESPIRATORY RATE INCREASED [None]
  - DYSPHAGIA [None]
